FAERS Safety Report 9054253 (Version 1)
Quarter: 2013Q1

REPORT INFORMATION
  Report Type: Spontaneous
  Country: US (occurrence: US)
  Receive Date: 20130208
  Receipt Date: 20130208
  Transmission Date: 20140127
  Serious: Yes (Death)
  Sender: FDA-Public Use
  Company Number: US-GLAXOSMITHKLINE-A1011285A

PATIENT
  Age: 78 Year
  Sex: Male

DRUGS (11)
  1. VOTRIENT [Suspect]
     Indication: SOFT TISSUE CANCER
     Dosage: 800MG PER DAY
     Route: 048
     Dates: start: 20120830
  2. ESTER-C [Concomitant]
  3. ZOFRAN [Concomitant]
  4. MILK OF MAGNESIA [Concomitant]
  5. OXYCONTIN [Concomitant]
  6. LEXAPRO [Concomitant]
  7. FLUTICASONE [Concomitant]
  8. ATENOLOL [Concomitant]
  9. FINASTERIDE [Concomitant]
  10. NEXIUM [Concomitant]
  11. DEXAMETHASONE [Concomitant]

REACTIONS (1)
  - Death [Fatal]
